FAERS Safety Report 12647237 (Version 8)
Quarter: 2017Q1

REPORT INFORMATION
  Report Type: Report from Study
  Country: ES (occurrence: ES)
  Receive Date: 20160812
  Receipt Date: 20170117
  Transmission Date: 20170428
  Serious: Yes (Hospitalization)
  Sender: FDA-Public Use
  Company Number: ES-VERTEX PHARMACEUTICALS-2016-004696

PATIENT
  Age: 13 Year
  Sex: Female
  Weight: 46 kg

DRUGS (5)
  1. OMALIZUMAB [Concomitant]
     Active Substance: OMALIZUMAB
     Indication: BRONCHOPULMONARY ASPERGILLOSIS ALLERGIC
     Dosage: 600 MG, EVERY TWO WEEKS
     Dates: start: 201604
  2. STEROIDS [Concomitant]
     Active Substance: UNSPECIFIED INGREDIENT
     Indication: BRONCHOPULMONARY ASPERGILLOSIS ALLERGIC
     Route: 048
  3. ORKAMBI [Suspect]
     Active Substance: IVACAFTOR\LUMACAFTOR
     Dosage: 2 DF, BID
     Route: 048
     Dates: start: 20160824
  4. ORKAMBI [Suspect]
     Active Substance: IVACAFTOR\LUMACAFTOR
     Indication: CYSTIC FIBROSIS
     Dosage: 2 DF, BID
     Route: 048
     Dates: start: 20160801, end: 20160804
  5. ORKAMBI [Suspect]
     Active Substance: IVACAFTOR\LUMACAFTOR
     Dosage: 1 DF, BID
     Route: 048
     Dates: start: 20160822, end: 20160824

REACTIONS (9)
  - Bronchospasm [Recovered/Resolved]
  - Infective pulmonary exacerbation of cystic fibrosis [Recovering/Resolving]
  - Forced expiratory volume decreased [Recovered/Resolved]
  - Vomiting [Recovered/Resolved]
  - Cough [Recovered/Resolved]
  - Dyspnoea [Recovered/Resolved]
  - Oropharyngeal discomfort [Recovered/Resolved]
  - Respiration abnormal [Recovered/Resolved]
  - Hypoxia [Recovered/Resolved]

NARRATIVE: CASE EVENT DATE: 20160801
